FAERS Safety Report 8578047-3 (Version None)
Quarter: 2012Q3

REPORT INFORMATION
  Report Type: 
  Country: None (occurrence: None)
  Receive Date: 20120808
  Receipt Date: 20120802
  Transmission Date: 20120928
  Serious: Yes (Death, Hospitalization)
  Sender: FDA-Public Use
  Company Number: PHEH2012US010729

PATIENT
  Sex: Female

DRUGS (11)
  1. LEVOTHYROXINE SODIUM [Concomitant]
     Dosage: 75 MG, DAILY
     Route: 048
  2. LOVASTATIN [Concomitant]
     Dosage: 40 MG, DAILY
     Route: 048
  3. GLIMEPIRIDE [Concomitant]
     Dosage: 4 MG, DAILY
     Route: 065
  4. ASPIRIN [Concomitant]
     Dosage: 81 MG, DAILY
     Route: 048
  5. RADIATION THERAPY [Concomitant]
     Dosage: UNK UKN, UNK
     Route: 065
  6. GLEEVEC [Suspect]
     Dosage: 400 MG, DAILY
     Route: 048
     Dates: start: 20120214
  7. INSULIN [Concomitant]
  8. GLEEVEC [Suspect]
     Indication: CHRONIC MYELOID LEUKAEMIA
     Dosage: 400 MG, DAILY
     Route: 048
     Dates: start: 20081201
  9. FUROSEMIDE [Concomitant]
     Route: 048
  10. LISINOPRIL [Concomitant]
     Dosage: 200 MG, DAILY
     Route: 048
  11. GABAPENTIN [Concomitant]
     Dosage: 300 MG, UNK
     Route: 048

REACTIONS (14)
  - OVARIAN CANCER [None]
  - OVARIAN CYST [None]
  - URINARY TRACT INFECTION [None]
  - PAIN IN EXTREMITY [None]
  - RENAL FAILURE ACUTE [None]
  - PERFORMANCE STATUS DECREASED [None]
  - ENDOMETRIAL CANCER STAGE III [None]
  - METASTASES TO SMALL INTESTINE [None]
  - UTERINE LEIOMYOSARCOMA [None]
  - ENDOMETRIAL CANCER [None]
  - ASCITES [None]
  - FLUID RETENTION [None]
  - LEIOMYOSARCOMA METASTATIC [None]
  - OEDEMA [None]
